FAERS Safety Report 6326886-1 (Version None)
Quarter: 2009Q3

REPORT INFORMATION
  Report Type: 
  Country: None (occurrence: None)
  Receive Date: 20090825
  Receipt Date: 20090820
  Transmission Date: 20100115
  Serious: Yes (Other)
  Sender: FDA-Public Use
  Company Number: IT-JNJFOC-20090806507

PATIENT
  Age: 34 Year
  Sex: Male

DRUGS (2)
  1. LEVOXACIN [Suspect]
     Indication: GASTRIC ULCER HELICOBACTER
     Dosage: 3 MONTHS
     Route: 065
  2. ESOMEPRAZOLE [Suspect]
     Indication: GASTRIC ULCER HELICOBACTER
     Dosage: 3 MONTHS
     Route: 065

REACTIONS (7)
  - AGGRESSION [None]
  - ANXIETY [None]
  - DELIRIUM [None]
  - MANIA [None]
  - MENTAL DISORDER [None]
  - PERSECUTORY DELUSION [None]
  - RESTLESSNESS [None]
